FAERS Safety Report 8072138-1 (Version None)
Quarter: 2012Q1

REPORT INFORMATION
  Report Type: 
  Country: None (occurrence: None)
  Receive Date: 20120124
  Receipt Date: 20120124
  Transmission Date: 20120608
  Serious: Yes (Hospitalization, Other)
  Sender: FDA-Public Use
  Company Number: None

PATIENT
  Age: 49 Year
  Sex: Female
  Weight: 62.2 kg

DRUGS (2)
  1. HALOPERIDOL [Suspect]
     Dosage: 5 MG PRN IV
     Route: 042
     Dates: start: 20111227, end: 20120101
  2. HALOPERIDOL [Suspect]
     Dosage: 25 MG EVERY PO
     Route: 048
     Dates: start: 20120104, end: 20120106

REACTIONS (3)
  - CARDIAC ARREST [None]
  - ELECTROCARDIOGRAM QT PROLONGED [None]
  - TORSADE DE POINTES [None]
